FAERS Safety Report 5017383-4 (Version None)
Quarter: 2006Q2

REPORT INFORMATION
  Report Type: 
  Country: None (occurrence: None)
  Receive Date: 20060601
  Receipt Date: 20060601
  Transmission Date: 20061013
  Serious: Yes (Life-Threatening, Hospitalization)
  Sender: FDA-Public Use
  Company Number: None

PATIENT
  Age: 84 Year
  Sex: Male
  Weight: 71.4 kg

DRUGS (4)
  1. ETODOLAC [Suspect]
     Indication: OSTEOARTHRITIS
     Dosage: 1200MG, 400MG  TI, ORAL
     Route: 048
     Dates: end: 20050913
  2. LISINOPRIL [Concomitant]
  3. METOPROLOL TARTRATE [Concomitant]
  4. PROPOXYPHENE N [Concomitant]

REACTIONS (1)
  - DUODENAL ULCER [None]
